FAERS Safety Report 10245942 (Version 1)
Quarter: 2014Q2

REPORT INFORMATION
  Report Type: Spontaneous
  Country: US (occurrence: None)
  Receive Date: 20140616
  Receipt Date: 20140616
  Transmission Date: 20141212
  Serious: Yes (Life-Threatening, Hospitalization, Disabling, Other)
  Sender: FDA-Public Use
  Company Number: None

PATIENT
  Age: 72 Year
  Sex: Female
  Weight: 74.84 kg

DRUGS (28)
  1. JUVADERM VOLUMA XC [Suspect]
     Indication: SKIN WRINKLING
     Dosage: 1 SYRINGE  1X INJECTION  BY INJECTION
     Dates: start: 20140506, end: 20140506
  2. MICARDIS [Concomitant]
  3. XANAX [Concomitant]
  4. CYMBALTA [Concomitant]
  5. AMITRIPTYLLINE [Concomitant]
  6. BACLOFEN [Concomitant]
  7. ZOFRAN [Concomitant]
  8. CYMBALTA [Concomitant]
  9. B12 [Concomitant]
  10. CITRACAL [Concomitant]
  11. OSTEO BI-FLEX [Concomitant]
  12. MVI [Concomitant]
  13. PROBIOTIC [Concomitant]
  14. D3 [Concomitant]
  15. GLUCOSAMINE CHONDROTIN [Concomitant]
  16. MICARDIS 80MG PO QHS [Concomitant]
  17. XANAX 0.25MG QD PRN [Concomitant]
  18. B12 2500MCG SL QD [Concomitant]
  19. CYMBALTA [Concomitant]
  20. ZOFRAN 8MG PO Q8HOURS PRN NAUSEA [Concomitant]
  21. CITRACAL ONE PO DAILY [Concomitant]
  22. AMITRIPTYLLINE 50MG PO QHS [Concomitant]
  23. BACLOFEN 10MG PO TID PRN LEG SPASMS [Concomitant]
  24. MVI ONE PO DAILY [Concomitant]
  25. PROBIOTIC ONE PO DAILY [Concomitant]
  26. D3 2000 UNITS PO M, W, F [Concomitant]
  27. GLUCOSAMINE CHONDRITON ONE PO DAILY [Concomitant]
  28. SYNTHROID 100MCG ONE PO DAILY [Concomitant]

REACTIONS (13)
  - Coma [None]
  - Psychomotor hyperactivity [None]
  - Confusional state [None]
  - Altered state of consciousness [None]
  - Unresponsive to stimuli [None]
  - Respiratory disorder [None]
  - Dysarthria [None]
  - Mydriasis [None]
  - Miosis [None]
  - Muscle twitching [None]
  - Dysphagia [None]
  - Hypoaesthesia [None]
  - Monoplegia [None]
